FAERS Safety Report 9543588 (Version 1)
Quarter: 2013Q2

REPORT INFORMATION
  Report Type: Spontaneous
  Country: US (occurrence: None)
  Receive Date: 20130524
  Receipt Date: 20130524
  Transmission Date: 20140414
  Serious: Yes (Other)
  Sender: FDA-Public Use
  Company Number: PHEH2012US025135

PATIENT
  Age: 59 Year
  Sex: Female
  Weight: 75.7 kg

DRUGS (5)
  1. GILENYA (FINGOLIMOD) CAPSULE, 0.5MG [Suspect]
     Indication: RELAPSING-REMITTING MULTIPLE SCLEROSIS
     Route: 048
     Dates: start: 20121114, end: 20121219
  2. IMITREX (SUMATRIPTAN SUCCINATE) [Concomitant]
  3. DETROL LA (TOLTERODINE L-TARTRATE) [Concomitant]
  4. NUVIGIL (ARMODAFINIL) [Concomitant]
  5. ACTONEL (RISEDRONATE SODIUM) [Concomitant]

REACTIONS (3)
  - Herpes zoster [None]
  - Rash [None]
  - Pain [None]
